FAERS Safety Report 5853231-8 (Version None)
Quarter: 2008Q3

REPORT INFORMATION
  Report Type: 
  Country: None (occurrence: None)
  Receive Date: 20080820
  Receipt Date: 20080808
  Transmission Date: 20090109
  Serious: Yes (Hospitalization)
  Sender: FDA-Public Use
  Company Number: 1-16502249

PATIENT
  Age: 13 Year
  Sex: Male

DRUGS (1)
  1. SOLODYN [Suspect]
     Indication: ACNE
     Dates: start: 20080601, end: 20080701

REACTIONS (2)
  - ENCEPHALITIS [None]
  - MENINGITIS VIRAL [None]
